FAERS Safety Report 6083285-8 (Version None)
Quarter: 2009Q1

REPORT INFORMATION
  Report Type: 
  Country: None (occurrence: None)
  Receive Date: 20090219
  Receipt Date: 20090119
  Transmission Date: 20090719
  Serious: No
  Sender: FDA-Public Use
  Company Number: US-BAYER-200911328NA

PATIENT
  Age: 67 Year
  Sex: Male

DRUGS (4)
  1. AVELOX [Suspect]
     Indication: PNEUMONIA
  2. METFORMIN HCL [Concomitant]
  3. ADVAIR DISKUS 100/50 [Concomitant]
  4. ALBUTEROL [Concomitant]

REACTIONS (1)
  - NECK PAIN [None]
